FAERS Safety Report 11927417 (Version 1)
Quarter: 2016Q1

REPORT INFORMATION
  Report Type: Spontaneous
  Country: US (occurrence: None)
  Receive Date: 20160115
  Receipt Date: 20160115
  Transmission Date: 20160526
  Serious: Yes (Disabling, Other)
  Sender: FDA-Public Use
  Company Number: None

PATIENT
  Age: 52 Year
  Sex: Female
  Weight: 88.45 kg

DRUGS (6)
  1. DAILY VITAMIN SUPPLEMENT [Concomitant]
  2. DIOVAN [Concomitant]
     Active Substance: VALSARTAN
  3. TYLENOL [Concomitant]
     Active Substance: ACETAMINOPHEN
  4. VALSARTAN. [Suspect]
     Active Substance: VALSARTAN
     Indication: HYPERTENSION
     Dosage: 1 PILL
     Route: 048
     Dates: start: 20151114, end: 20160108
  5. IBUPROFEN. [Concomitant]
     Active Substance: IBUPROFEN
  6. VALSARTAN. [Concomitant]
     Active Substance: VALSARTAN

REACTIONS (6)
  - Dizziness [None]
  - Blood pressure increased [None]
  - Osteomyelitis [None]
  - Drug ineffective [None]
  - Presyncope [None]
  - Product substitution issue [None]

NARRATIVE: CASE EVENT DATE: 20160109
